FAERS Safety Report 18813729 (Version 1)
Quarter: 2021Q1

REPORT INFORMATION
  Report Type: Spontaneous
  Country: HU (occurrence: HU)
  Receive Date: 20210201
  Receipt Date: 20210201
  Transmission Date: 20210419
  Serious: Yes (Other)
  Sender: FDA-Public Use
  Company Number: HU-JNJFOC-20210134738

PATIENT
  Age: 41 Year
  Sex: Female

DRUGS (3)
  1. HALOPERIDOL. [Suspect]
     Active Substance: HALOPERIDOL
     Indication: SCHIZOPHRENIA
     Route: 065
     Dates: start: 20100101
  2. CLONAZEPAM. [Suspect]
     Active Substance: CLONAZEPAM
     Indication: SCHIZOPHRENIA
     Route: 065
     Dates: start: 20100101
  3. ARIPIPRAZOLE. [Suspect]
     Active Substance: ARIPIPRAZOLE
     Indication: SCHIZOPHRENIA
     Route: 065
     Dates: start: 20100101

REACTIONS (8)
  - Psychotic disorder [Unknown]
  - Overdose [Unknown]
  - Suicide attempt [Unknown]
  - Vomiting [Unknown]
  - Hallucination [Recovered/Resolved]
  - Weight increased [Unknown]
  - Hallucination, auditory [Unknown]
  - Insomnia [Unknown]
